FAERS Safety Report 9146730 (Version 2)
Quarter: 2013Q1

REPORT INFORMATION
  Report Type: Spontaneous
  Country: US (occurrence: None)
  Receive Date: 20130211
  Receipt Date: 20130219
  Transmission Date: 20140127
  Serious: Yes (Death)
  Sender: FDA-Public Use
  Company Number: DKLU1088774

PATIENT
  Age: 5 Year
  Sex: Male

DRUGS (1)
  1. SABRIL (FOR ORAL SOLUTION)  (SABRIL) (VIGABATRIN) (500 MG, POWDER FOR ORAL SOLUTION) [Suspect]
     Indication: EPILEPSY
     Dates: start: 201001

REACTIONS (1)
  - Death [None]
